FAERS Safety Report 17823532 (Version 6)
Quarter: 2022Q1

REPORT INFORMATION
  Report Type: Spontaneous
  Country: US (occurrence: US)
  Receive Date: 20200526
  Receipt Date: 20220331
  Transmission Date: 20220424
  Serious: No
  Sender: FDA-Public Use
  Company Number: US-PFIZER INC-2020176068

PATIENT
  Age: 75 Year
  Sex: Female
  Weight: 68 kg

DRUGS (9)
  1. PREGABALIN [Suspect]
     Active Substance: PREGABALIN
     Indication: Neuralgia
     Dosage: 25 MG, 2X/DAY
     Route: 048
     Dates: start: 202004, end: 202004
  2. PREGABALIN [Suspect]
     Active Substance: PREGABALIN
     Dosage: 25 MG, 2X/DAY
     Route: 048
     Dates: start: 20200425, end: 20200425
  3. PROPAFENONE [Concomitant]
     Active Substance: PROPAFENONE
     Indication: Cardiac ablation
     Dosage: 150 MG, 2X/DAY
  4. BYSTOLIC [Concomitant]
     Active Substance: NEBIVOLOL HYDROCHLORIDE
     Dosage: 2.5 MG, DAILY
  5. AMLODIPINE [Concomitant]
     Active Substance: AMLODIPINE BESYLATE
     Indication: Hypertension
     Dosage: 25 MG, DAILY
  6. WARFARIN [Concomitant]
     Active Substance: WARFARIN
     Indication: Cardiac ablation
     Dosage: 2.5 MG (4X A WEEK)
  7. WARFARIN [Concomitant]
     Active Substance: WARFARIN
     Indication: Atrial fibrillation
     Dosage: 5 MG (3X A WEEK)
  8. METOPROLOL [Concomitant]
     Active Substance: METOPROLOL
     Indication: Cardiac ablation
     Dosage: 3 MG
  9. ZETIA [Concomitant]
     Active Substance: EZETIMIBE
     Indication: Blood cholesterol increased
     Dosage: 3 MG

REACTIONS (8)
  - Drug ineffective [Unknown]
  - Neuralgia [Unknown]
  - Condition aggravated [Unknown]
  - Pain [Recovered/Resolved]
  - Paraesthesia [Recovered/Resolved]
  - Hypoaesthesia [Recovered/Resolved]
  - Confusional state [Unknown]
  - Skin burning sensation [Recovering/Resolving]

NARRATIVE: CASE EVENT DATE: 20200401
